FAERS Safety Report 4463689-7 (Version None)
Quarter: 2004Q3

REPORT INFORMATION
  Report Type: 
  Country: None (occurrence: None)
  Receive Date: 20040929
  Receipt Date: 20040916
  Transmission Date: 20050211
  Serious: Yes (Hospitalization)
  Sender: FDA-Public Use
  Company Number: 2004229690FR

PATIENT
  Age: 94 Year
  Sex: Female

DRUGS (6)
  1. ALDACTONE [Suspect]
     Dosage: 25 MG, DAILY, ORAL
     Route: 048
     Dates: end: 20040622
  2. DASOVAS (NICERGOLINE)TABLET [Suspect]
     Dosage: 1 DF,TID, DAILY, ORAL
     Route: 048
     Dates: end: 20040622
  3. SELECTOL (CELIPROLOL HYDROCHLORIDE) TABLET [Suspect]
     Dosage: 200 MG, DAILY, ORAL
     Route: 048
     Dates: end: 20040622
  4. CLONIDINE [Suspect]
     Dosage: 0.15 MG, DAILY, ORAL
     Route: 048
     Dates: end: 20040622
  5. EUPRESSYL (URAPIDIL) CAPSULE [Suspect]
     Dosage: 30 MG, DAILY, ORAL
     Route: 048
     Dates: end: 20040622
  6. STABLON (TIANEPTINE) TABLET [Suspect]
     Dosage: 12.5 MG, BID, ORAL
     Route: 048
     Dates: end: 20040622

REACTIONS (2)
  - CALCINOSIS [None]
  - PANCREATITIS ACUTE [None]
